FAERS Safety Report 6426789-8 (Version None)
Quarter: 2009Q4

REPORT INFORMATION
  Report Type: 
  Country: None (occurrence: None)
  Receive Date: 20091104
  Receipt Date: 20091026
  Transmission Date: 20100525
  Serious: Yes (Other)
  Sender: FDA-Public Use
  Company Number: NO-JNJFOC-20091008551

PATIENT
  Age: 48 Year
  Sex: Female

DRUGS (1)
  1. REMICADE [Suspect]
     Indication: COLITIS ULCERATIVE
     Dosage: EVERY 6-7 WEEKS
     Route: 042

REACTIONS (1)
  - BREAST CANCER [None]
